FAERS Safety Report 8969080 (Version 1)
Quarter: 2012Q4

REPORT INFORMATION
  Report Type: Spontaneous
  Country: CA (occurrence: None)
  Receive Date: 20121210
  Receipt Date: 20121210
  Transmission Date: 20130627
  Serious: Yes (Death, Hospitalization)
  Sender: FDA-Public Use
  Company Number: 2012-4600

PATIENT
  Age: 79 Year
  Sex: Male

DRUGS (2)
  1. LANREOTIDE [Suspect]
     Indication: CARCINOID TUMOUR
     Dosage: 120 mg (120 mg, 1 in 21 d), subcutaneous
     Route: 058
     Dates: start: 20090323
  2. LANREOTIDE [Suspect]
     Indication: CARCINOID TUMOUR
     Dosage: 120 mg (120 mg, 1 in 28 d), subcutaneous
     Route: 058
     Dates: end: 20121004

REACTIONS (2)
  - Abdominal pain [None]
  - Hernia [None]
